FAERS Safety Report 18374531 (Version 3)
Quarter: 2020Q4

REPORT INFORMATION
  Report Type: Spontaneous
  Country: US (occurrence: US)
  Receive Date: 20201012
  Receipt Date: 20201020
  Transmission Date: 20210114
  Serious: No
  Sender: FDA-Public Use
  Company Number: US-PFIZER INC-2020391324

PATIENT
  Age: 36 Year
  Sex: Male

DRUGS (1)
  1. IBRANCE [Suspect]
     Active Substance: PALBOCICLIB
     Dosage: 200 MG, CYCLIC (14 DAYS ON, 7 DAYS OFF EVERY 21 DAYS CYCLE)
     Route: 048

REACTIONS (1)
  - Neoplasm progression [Unknown]
